FAERS Safety Report 14318605 (Version 1)
Quarter: 2017Q4

REPORT INFORMATION
  Report Type: Report from Study
  Country: US (occurrence: US)
  Receive Date: 20171222
  Receipt Date: 20171222
  Transmission Date: 20180321
  Serious: Yes (Other)
  Sender: FDA-Public Use
  Company Number: US-MYLANLABS-2017M1078547

PATIENT
  Sex: Female

DRUGS (2)
  1. RILUZOLE. [Suspect]
     Active Substance: RILUZOLE
     Indication: OBSESSIVE-COMPULSIVE DISORDER
     Dosage: APPROXIMATELY 100MG/DAY
     Route: 050
  2. FLUVOXAMINE [Interacting]
     Active Substance: FLUVOXAMINE
     Indication: OBSESSIVE-COMPULSIVE DISORDER
     Dosage: UNK
     Route: 050

REACTIONS (3)
  - Pancreatitis [Recovered/Resolved]
  - Drug level increased [Unknown]
  - Drug interaction [Unknown]
